FAERS Safety Report 6856967-5 (Version None)
Quarter: 2010Q3

REPORT INFORMATION
  Report Type: 
  Country: None (occurrence: None)
  Receive Date: 20100719
  Receipt Date: 20100625
  Transmission Date: 20110219
  Serious: Yes (Other)
  Sender: FDA-Public Use
  Company Number: A0796446A

PATIENT
  Age: 53 Year
  Sex: Male
  Weight: 128.2 kg

DRUGS (6)
  1. AVANDIA [Suspect]
     Dosage: 8MG PER DAY
     Route: 048
     Dates: start: 20010101, end: 20070501
  2. CRESTOR [Concomitant]
  3. JANUVIA [Concomitant]
  4. NEXIUM [Concomitant]
  5. INSULIN [Concomitant]
  6. METFORMIN [Concomitant]

REACTIONS (4)
  - CARDIOVASCULAR DISORDER [None]
  - CEREBROVASCULAR ACCIDENT [None]
  - INTRACARDIAC THROMBUS [None]
  - TRANSIENT ISCHAEMIC ATTACK [None]
